FAERS Safety Report 9177377 (Version 1)
Quarter: 2013Q1

REPORT INFORMATION
  Report Type: Spontaneous
  Country: US (occurrence: None)
  Receive Date: 20130320
  Receipt Date: 20130320
  Transmission Date: 20140127
  Serious: Yes (Death)
  Sender: FDA-Public Use
  Company Number: None

PATIENT
  Age: 65 Year
  Sex: Male
  Weight: 108 kg

DRUGS (1)
  1. RIFAMPICIN [Suspect]
     Indication: MULTIPLE SYSTEM ATROPHY
     Dates: start: 20120225, end: 20121109

REACTIONS (8)
  - Unresponsive to stimuli [None]
  - Delirium [None]
  - Movement disorder [None]
  - Fall [None]
  - Eye disorder [None]
  - Speech disorder [None]
  - Contusion [None]
  - Middle insomnia [None]
